FAERS Safety Report 12866663 (Version 1)
Quarter: 2016Q4

REPORT INFORMATION
  Report Type: Other
  Country: IR (occurrence: IR)
  Receive Date: 20161020
  Receipt Date: 20161020
  Transmission Date: 20170207
  Serious: Yes (Other)
  Sender: FDA-Public Use
  Company Number: IR-NOVEL LABORATORIES, INC-2016-04684

PATIENT
  Age: 32 Year
  Sex: Female

DRUGS (1)
  1. MISOPROSTOL. [Suspect]
     Active Substance: MISOPROSTOL
     Indication: ABORTION
     Dosage: 2 TABLETS (400 MG), SUBLINGUAL AND INTRAVAGINAL, EVERY 2 HOUR (TOTAL 11 DOSES: 22 TABLETS)
     Route: 065

REACTIONS (4)
  - Abdominal pain [Unknown]
  - Erythema multiforme [Recovered/Resolved]
  - Diarrhoea [Unknown]
  - Chills [Unknown]
